FAERS Safety Report 7399076-1 (Version None)
Quarter: 2011Q1

REPORT INFORMATION
  Report Type: 
  Country: None (occurrence: None)
  Receive Date: 20110328
  Receipt Date: 20110318
  Transmission Date: 20110831
  Serious: Yes (Hospitalization)
  Sender: FDA-Public Use
  Company Number: 2011030093

PATIENT
  Age: 54 Year
  Sex: Male

DRUGS (5)
  1. EXALGO (HYDROMORPHONE HYDROCHLORIDE) [Concomitant]
  2. HYDROMORPHONE [Concomitant]
  3. ONSOLIS [Suspect]
     Indication: CANCER PAIN
     Dosage: 200 MCG, UP TO FOUR FILMS, FOUR TIMES DAILY, BU; 3200 MCG (800 MCG, 4 IN 1 D), BU
     Route: 002
     Dates: start: 20110309
  4. ONSOLIS [Suspect]
     Indication: CANCER PAIN
     Dosage: 200 MCG, UP TO FOUR FILMS, FOUR TIMES DAILY, BU; 3200 MCG (800 MCG, 4 IN 1 D), BU
     Route: 002
     Dates: start: 20100625
  5. FENTORA [Suspect]
     Dosage: 2400 MCG (600 MCG, 4 IN 1 D);
     Dates: start: 20110301

REACTIONS (6)
  - FALL [None]
  - TIBIA FRACTURE [None]
  - MOUTH ULCERATION [None]
  - FIBULA FRACTURE [None]
  - THERMAL BURN [None]
  - PAIN IN EXTREMITY [None]
